FAERS Safety Report 12544901 (Version 6)
Quarter: 2016Q3

REPORT INFORMATION
  Report Type: Spontaneous
  Country: JP (occurrence: JP)
  Receive Date: 20160711
  Receipt Date: 20160930
  Transmission Date: 20161109
  Serious: Yes (Other)
  Sender: FDA-Public Use
  Company Number: JP-GLAXOSMITHKLINE-JP2016JPN096498

PATIENT
  Age: 49 Year
  Sex: Female
  Weight: 50 kg

DRUGS (3)
  1. VALTREX [Suspect]
     Active Substance: VALACYCLOVIR HYDROCHLORIDE
     Indication: KAPOSI^S VARICELLIFORM ERUPTION
  2. VALTREX [Suspect]
     Active Substance: VALACYCLOVIR HYDROCHLORIDE
     Indication: ANTIVIRAL PROPHYLAXIS
     Dosage: 500 MG, BID
     Route: 048
     Dates: start: 20080624
  3. TALION (JAPAN) [Suspect]
     Active Substance: BEPOTASTINE
     Indication: DERMATITIS ATOPIC
     Dosage: UNK
     Route: 048

REACTIONS (4)
  - Interstitial lung disease [Recovering/Resolving]
  - Incorrect drug administration duration [Unknown]
  - Pulmonary fibrosis [Unknown]
  - Treatment noncompliance [Unknown]

NARRATIVE: CASE EVENT DATE: 20160529
